FAERS Safety Report 11323430 (Version 1)
Quarter: 2015Q3

REPORT INFORMATION
  Report Type: Spontaneous
  Country: US (occurrence: None)
  Receive Date: 20150729
  Receipt Date: 20150729
  Transmission Date: 20151125
  Serious: No
  Sender: FDA-Public Use
  Company Number: None

PATIENT
  Age: 83 Day
  Sex: Male
  Weight: 83.92 kg

DRUGS (1)
  1. HALDOL [Suspect]
     Active Substance: HALOPERIDOL
     Indication: PATIENT RESTRAINT

REACTIONS (4)
  - Hypersomnia [None]
  - Dysstasia [None]
  - Quality of life decreased [None]
  - Eating disorder [None]
